FAERS Safety Report 11009122 (Version 1)
Quarter: 2015Q2

REPORT INFORMATION
  Report Type: Spontaneous
  Country: US (occurrence: US)
  Receive Date: 20150410
  Receipt Date: 20150410
  Transmission Date: 20150821
  Serious: Yes (Hospitalization)
  Sender: FDA-Public Use
  Company Number: US-JNJFOC-20150401345

PATIENT
  Sex: Female

DRUGS (3)
  1. RISPERIDONE. [Suspect]
     Active Substance: RISPERIDONE
     Indication: MOOD SWINGS
     Route: 065
     Dates: start: 2014, end: 2015
  2. RISPERIDONE. [Suspect]
     Active Substance: RISPERIDONE
     Indication: MOOD SWINGS
     Route: 065
     Dates: start: 2005, end: 2014
  3. RISPERIDONE. [Suspect]
     Active Substance: RISPERIDONE
     Indication: MOOD SWINGS
     Route: 065
     Dates: start: 201408, end: 2014

REACTIONS (6)
  - Drug effect increased [Unknown]
  - Hospitalisation [Unknown]
  - Product use issue [Unknown]
  - Adverse event [Unknown]
  - Drug dose omission [Unknown]
  - Vision blurred [Unknown]

NARRATIVE: CASE EVENT DATE: 2005
